FAERS Safety Report 9799432 (Version 1)
Quarter: 2013Q4

REPORT INFORMATION
  Report Type: Spontaneous
  Country: US (occurrence: None)
  Receive Date: 20131231
  Receipt Date: 20131231
  Transmission Date: 20140711
  Serious: Yes (Hospitalization, Other)
  Sender: FDA-Public Use
  Company Number: US-SEPTODONT-201301639

PATIENT
  Age: 76 Year
  Sex: Female
  Weight: 77 kg

DRUGS (2)
  1. MEPIVACAINE HYDROCHLORIDE INJECTION U.S.P. 3% [Suspect]
     Indication: LOCAL ANAESTHESIA
     Dosage: DENTAL
     Dates: start: 20131029, end: 20131029
  2. MEPIVACAINE [Suspect]
     Dosage: DENTAL
     Dates: start: 20131029, end: 20131029

REACTIONS (5)
  - Cerebrovascular accident [None]
  - Hypertension [None]
  - Syncope [None]
  - Dizziness [None]
  - Dyspnoea [None]
